FAERS Safety Report 7067621-1 (Version None)
Quarter: 2010Q4

REPORT INFORMATION
  Report Type: 
  Country: None (occurrence: None)
  Receive Date: 20101020
  Receipt Date: 20101006
  Transmission Date: 20110411
  Serious: Yes (Life-Threatening, Other)
  Sender: FDA-Public Use
  Company Number: 2010S1000215

PATIENT
  Age: 1 Month
  Sex: Male

DRUGS (4)
  1. INOMAX [Suspect]
     Indication: ACUTE RESPIRATORY FAILURE
     Dosage: CONT
     Dates: start: 20101006
  2. INOMAX [Suspect]
     Indication: ENDOTRACHEAL INTUBATION
     Dosage: CONT
     Dates: start: 20101006
  3. INOMAX [Suspect]
     Indication: PULMONARY HYPERTENSION
     Dosage: CONT
     Dates: start: 20101006
  4. INOMAX [Suspect]

REACTIONS (3)
  - DEVICE FAILURE [None]
  - HEART RATE DECREASED [None]
  - OXYGEN SATURATION DECREASED [None]
